FAERS Safety Report 8531194-4 (Version None)
Quarter: 2012Q3

REPORT INFORMATION
  Report Type: 
  Country: None (occurrence: None)
  Receive Date: 20120723
  Receipt Date: 20120709
  Transmission Date: 20120928
  Serious: Yes (Other)
  Sender: FDA-Public Use
  Company Number: FI-ELI_LILLY_AND_COMPANY-FI201206003699

PATIENT
  Sex: Male

DRUGS (2)
  1. OLANZAPINE [Suspect]
     Indication: PSYCHOTIC DISORDER
     Dosage: 300 MG, OTHER, EVERY TWO WEEKS
     Route: 030
     Dates: start: 20120503
  2. OLANZAPINE [Suspect]
     Dosage: 405 MG, OTHER, EVERY TWO WEEKS
     Route: 030
     Dates: start: 20120518

REACTIONS (5)
  - POISONING [None]
  - FEELING ABNORMAL [None]
  - SEDATION [None]
  - OVERDOSE [None]
  - DYSARTHRIA [None]
